FAERS Safety Report 17645666 (Version 1)
Quarter: 2020Q2

REPORT INFORMATION
  Report Type: Spontaneous
  Country: FR (occurrence: FR)
  Receive Date: 20200408
  Receipt Date: 20200408
  Transmission Date: 20200713
  Serious: Yes (Other)
  Sender: FDA-Public Use
  Company Number: FR-TEVA-2020-FR-1220584

PATIENT
  Age: 81 Year
  Sex: Female

DRUGS (11)
  1. ALPRAZOLAM. [Concomitant]
     Active Substance: ALPRAZOLAM
     Indication: ANXIETY
     Dosage: 0-0-1, 0.5 MG
     Route: 048
  2. AMLODIPINE [Concomitant]
     Active Substance: AMLODIPINE BESYLATE
     Indication: HYPERTENSION
     Dosage: 0-0-1, 5 MG
     Route: 048
  3. ATORVASTATINE [Concomitant]
     Active Substance: ATORVASTATIN
     Indication: DYSLIPIDAEMIA
     Dosage: 0-0-1, 10 MG
     Route: 048
  4. PANTOPRAZOLE [Suspect]
     Active Substance: PANTOPRAZOLE
     Indication: GASTRIC ULCER
     Dosage: 0-0-1, 20 MG
     Route: 048
  5. DULOXETINE MYLAN [Suspect]
     Active Substance: DULOXETINE
     Dosage: 1-0-0, 60 MG
     Route: 048
     Dates: start: 20191202, end: 20191224
  6. AMIODARONE (CHLORHYDRATE D^) [Suspect]
     Active Substance: AMIODARONE HYDROCHLORIDE
     Indication: ATRIAL FIBRILLATION
     Dosage: 1-0-0 5 DAYS A WEEK, 1000 MG
     Route: 048
  7. DULOXETINE MYLAN [Suspect]
     Active Substance: DULOXETINE
     Indication: DEPRESSION
     Dosage: 1-0-0, 90 MG
     Route: 048
     Dates: start: 20191224, end: 20200102
  8. DULOXETINE MYLAN [Suspect]
     Active Substance: DULOXETINE
     Dosage: 1-0-0 , 30 MG
     Route: 048
     Dates: start: 20191029, end: 20191202
  9. KARDEGIC [Concomitant]
     Active Substance: ASPIRIN DL-LYSINE
     Indication: HYPERTENSION
     Dosage: 1-0-0, 160 MG
     Route: 048
  10. OLANZAPINE. [Concomitant]
     Active Substance: OLANZAPINE
     Indication: PSYCHOTIC DISORDER
     Dosage: 0-0-1/2, 2.5 MG
     Route: 048
  11. RAMIPRIL. [Concomitant]
     Active Substance: RAMIPRIL
     Indication: HYPERTENSION
     Dosage: 1-0-0, 10 MG
     Route: 048

REACTIONS (2)
  - Drug interaction [Unknown]
  - Hepatocellular injury [Recovered/Resolved]

NARRATIVE: CASE EVENT DATE: 20200102
